FAERS Safety Report 15761524 (Version 1)
Quarter: 2018Q4

REPORT INFORMATION
  Report Type: Spontaneous
  Country: US (occurrence: US)
  Receive Date: 20181226
  Receipt Date: 20181226
  Transmission Date: 20190205
  Serious: Yes (Other)
  Sender: FDA-Public Use
  Company Number: US-ALLERGAN-1828079US

PATIENT
  Age: 58 Year
  Sex: Female

DRUGS (6)
  1. REFRESH OPTIVE ADVANCED [Suspect]
     Active Substance: CARBOXYMETHYLCELLULOSE SODIUM\GLYCERIN\POLYSORBATE 80
     Indication: DRY EYE
     Dosage: 1 TO 2 DROPS, Q3HR
     Route: 047
  2. ANTIBIOTIC [Concomitant]
     Active Substance: UNSPECIFIED INGREDIENT
     Indication: CORNEAL OPERATION
     Dosage: UNK
     Route: 047
     Dates: start: 20181130, end: 20181207
  3. REFRESH OPTIVE MEGA-3 [Suspect]
     Active Substance: CARBOXYMETHYLCELLULOSE SODIUM\GLYCERIN\POLYSORBATE 80
     Indication: CORNEAL OPERATION
  4. EYE OINTMENT [Concomitant]
     Indication: CORNEAL OPERATION
     Route: 047
  5. EYE OINTMENT [Concomitant]
     Indication: DRY EYE
  6. REFRESH OPTIVE MEGA-3 [Suspect]
     Active Substance: CARBOXYMETHYLCELLULOSE SODIUM\GLYCERIN\POLYSORBATE 80
     Indication: DRY EYE
     Dosage: 1 TO 2 DROPS, Q3HR
     Route: 047
     Dates: start: 2017, end: 20181219

REACTIONS (6)
  - Eye infection [Unknown]
  - Multiple use of single-use product [Unknown]
  - Visual impairment [Not Recovered/Not Resolved]
  - Balance disorder [Not Recovered/Not Resolved]
  - Corneal disorder [Unknown]
  - Corneal abrasion [Unknown]

NARRATIVE: CASE EVENT DATE: 20181130
